FAERS Safety Report 5316597-3 (Version None)
Quarter: 2007Q2

REPORT INFORMATION
  Report Type: 
  Country: None (occurrence: None)
  Receive Date: 20070504
  Receipt Date: 20070424
  Transmission Date: 20071010
  Serious: Yes (Hospitalization)
  Sender: FDA-Public Use
  Company Number: US-AMGEN-US221836

PATIENT
  Age: 66 Year
  Sex: Female
  Weight: 54.9 kg

DRUGS (3)
  1. PROCRIT [Suspect]
     Indication: ANAEMIA OF MALIGNANT DISEASE
     Route: 065
     Dates: start: 20060101
  2. ASCORBIC ACID [Concomitant]
     Route: 065
  3. PERCOCET [Concomitant]
     Route: 065
     Dates: start: 20070101

REACTIONS (3)
  - DEEP VEIN THROMBOSIS [None]
  - HYDRONEPHROSIS [None]
  - THROMBOPHLEBITIS SUPERFICIAL [None]
